FAERS Safety Report 4712131-7 (Version None)
Quarter: 2005Q3

REPORT INFORMATION
  Report Type: 
  Country: None (occurrence: None)
  Receive Date: 20050712
  Receipt Date: 20050629
  Transmission Date: 20060218
  Serious: Yes (Death)
  Sender: FDA-Public Use
  Company Number: US-SANOFI-SYNTHELABO-A03200501964

PATIENT
  Age: 36 Year
  Sex: Female
  Weight: 61.2 kg

DRUGS (1)
  1. AMBIEN [Suspect]
     Indication: INSOMNIA
     Route: 048
     Dates: start: 20011101

REACTIONS (10)
  - ALCOHOL USE [None]
  - COMPLETED SUICIDE [None]
  - DELIRIUM [None]
  - DRUG TOXICITY [None]
  - HALLUCINATION [None]
  - HEPATIC STEATOSIS [None]
  - IMPULSIVE BEHAVIOUR [None]
  - INJURY ASPHYXIATION [None]
  - INTENTIONAL MISUSE [None]
  - OVERDOSE [None]
